FAERS Safety Report 4682848-1 (Version None)
Quarter: 2005Q2

REPORT INFORMATION
  Report Type: 
  Country: None (occurrence: None)
  Receive Date: 20050602
  Receipt Date: 20050422
  Transmission Date: 20051028
  Serious: No
  Sender: FDA-Public Use
  Company Number: USA050496448

PATIENT
  Age: 48 Year
  Sex: Male
  Weight: 93 kg

DRUGS (6)
  1. CYMBALTA [Suspect]
     Indication: HEADACHE
     Dosage: 30 MG IN THE EVENING
     Dates: start: 20050421, end: 20050421
  2. PAMINE (HYOSCINE METHOBROMIDE) [Concomitant]
  3. NEXIUM [Concomitant]
  4. ADVAIR [Concomitant]
  5. SPIRIVA [Concomitant]
  6. FLONASE [Concomitant]

REACTIONS (4)
  - DIZZINESS [None]
  - DRUG INTERACTION [None]
  - FEELING HOT [None]
  - NAUSEA [None]
